FAERS Safety Report 6335305-0 (Version None)
Quarter: 2009Q3

REPORT INFORMATION
  Report Type: 
  Country: None (occurrence: None)
  Receive Date: 20090831
  Receipt Date: 20090819
  Transmission Date: 20100115
  Serious: Yes (Life-Threatening, Hospitalization, Other)
  Sender: FDA-Public Use
  Company Number: US-PFIZER INC-2008099926

PATIENT
  Sex: Male
  Weight: 88.4 kg

DRUGS (10)
  1. BLINDED *NO SUBJECT DRUG [Suspect]
     Indication: PROSTATE CANCER
     Dosage: 37.5 MG, 1X/DAY
     Route: 048
     Dates: start: 20081024, end: 20081124
  2. BLINDED *PLACEBO [Suspect]
     Indication: PROSTATE CANCER
     Dosage: 37.5 MG, 1X/DAY
     Route: 048
     Dates: start: 20081024, end: 20081124
  3. BLINDED SUNITINIB MALATE [Suspect]
     Indication: PROSTATE CANCER
     Dosage: 37.5 MG, 1X/DAY
     Route: 048
     Dates: start: 20081024, end: 20081124
  4. PREDNISONE [Suspect]
     Indication: PROSTATE CANCER
     Dosage: 5 MG, 2X/DAY
     Route: 048
     Dates: start: 20081024, end: 20081128
  5. ALLOPURINOL [Concomitant]
     Indication: NEPHROLITHIASIS
     Route: 048
     Dates: start: 19780101
  6. LUPRON [Concomitant]
     Indication: PROSTATE CANCER
     Route: 050
     Dates: start: 20070219
  7. ZOMETA [Concomitant]
     Indication: BONE DISORDER
     Route: 042
     Dates: start: 20080222
  8. GLUCOTROL [Concomitant]
     Indication: DIABETES MELLITUS
     Route: 048
     Dates: start: 19980101
  9. SODIUM BICARBONATE IN PLASTIC CONTAINER [Concomitant]
     Indication: NEPHROLITHIASIS
     Route: 048
     Dates: start: 19780101
  10. GAS-X [Concomitant]
     Indication: FLATULENCE
     Route: 048
     Dates: start: 20081121

REACTIONS (1)
  - INTESTINAL ISCHAEMIA [None]
